FAERS Safety Report 9469923 (Version 1)
Quarter: 2013Q3

REPORT INFORMATION
  Report Type: Spontaneous
  Country: US (occurrence: None)
  Receive Date: 20130820
  Receipt Date: 20130820
  Transmission Date: 20140515
  Serious: No
  Sender: FDA-Public Use
  Company Number: None

PATIENT
  Age: 65 Year
  Sex: Female

DRUGS (4)
  1. XELJANZ [Suspect]
     Indication: RHEUMATOID ARTHRITIS
     Dosage: 5 MG TWO TIMES A DAY BY MOUTH
     Route: 048
     Dates: start: 20130726
  2. IMURAN [Concomitant]
  3. PAXIL [Concomitant]
  4. ALLEGRA [Concomitant]

REACTIONS (1)
  - Myalgia [None]
